FAERS Safety Report 22234888 (Version 1)
Quarter: 2023Q2

REPORT INFORMATION
  Report Type: Spontaneous
  Country: US (occurrence: None)
  Receive Date: 20230419
  Receipt Date: 20230419
  Transmission Date: 20230722
  Serious: No
  Sender: FDA-Public Use
  Company Number: None

PATIENT
  Age: 70 Year
  Sex: Female
  Weight: 58.95 kg

DRUGS (1)
  1. PIQRAY [Suspect]
     Active Substance: ALPELISIB

REACTIONS (1)
  - Rash [None]
